FAERS Safety Report 21518858 (Version 1)
Quarter: 2022Q4

REPORT INFORMATION
  Report Type: Spontaneous
  Country: JP (occurrence: JP)
  Receive Date: 20221028
  Receipt Date: 20221028
  Transmission Date: 20230112
  Serious: Yes (Death, Hospitalization)
  Sender: FDA-Public Use
  Company Number: JP-STRIDES ARCOLAB LIMITED-2022SP014032

PATIENT
  Age: 51 Year
  Sex: Male

DRUGS (18)
  1. PREDNISOLONE [Suspect]
     Active Substance: PREDNISOLONE
     Indication: Dermatomyositis
     Dosage: 1 MILLIGRAM/KILOGRAM (PREDNISOLONE 1 MG/KG WAS ADMINISTRATED FROM THE DAY 3 OF THE ADMISSION)
     Route: 065
  2. PREDNISOLONE [Suspect]
     Active Substance: PREDNISOLONE
     Indication: Interstitial lung disease
  3. CYCLOSPORINE [Suspect]
     Active Substance: CYCLOSPORINE
     Indication: Prophylaxis against graft versus host disease
     Dosage: UNK
     Route: 065
  4. CYCLOSPORINE [Suspect]
     Active Substance: CYCLOSPORINE
     Indication: Dermatomyositis
     Dosage: UNK
     Route: 065
  5. CYCLOSPORINE [Suspect]
     Active Substance: CYCLOSPORINE
     Indication: Interstitial lung disease
  6. METHOTREXATE [Suspect]
     Active Substance: METHOTREXATE
     Indication: Prophylaxis against graft versus host disease
     Dosage: UNK
     Route: 065
  7. CYCLOPHOSPHAMIDE [Suspect]
     Active Substance: CYCLOPHOSPHAMIDE
     Indication: Dermatomyositis
     Dosage: UNK, (CONDITIONING REGIMEN)
     Route: 065
  8. CYCLOPHOSPHAMIDE [Suspect]
     Active Substance: CYCLOPHOSPHAMIDE
     Indication: Interstitial lung disease
     Dosage: 500 MILLIGRAM/SQ. METER, (ON DAYS 7, 29 AND 43 OF ADMISSION)
     Route: 065
  9. CYCLOPHOSPHAMIDE [Suspect]
     Active Substance: CYCLOPHOSPHAMIDE
     Dosage: 1000 MILLIGRAM/SQ. METER (ON DAY 15 OF ADMISSION)
     Route: 065
  10. METHYLPREDNISOLONE [Suspect]
     Active Substance: METHYLPREDNISOLONE
     Indication: Dermatomyositis
     Dosage: 1 GRAM/DAY (METHYLPREDNISOLONE 1 G/DAY FOR 3 DAYS) WAS ALSO ADDED ON DAY 16 AND DAY 29)
     Route: 065
  11. METHYLPREDNISOLONE [Suspect]
     Active Substance: METHYLPREDNISOLONE
     Indication: Interstitial lung disease
  12. CYTARABINE [Concomitant]
     Active Substance: CYTARABINE
     Indication: Acute myeloid leukaemia
     Dosage: UNK, (INDUCTION THERAPY FOLLOWED BY 3 CYCLES OF CYTARABINE)
     Route: 065
  13. CYTARABINE [Concomitant]
     Active Substance: CYTARABINE
     Dosage: UNK, (1 CYCLE OF HIGH-DOSE CYTARABIN)
     Route: 065
  14. CYTARABINE [Concomitant]
     Active Substance: CYTARABINE
     Dosage: UNK, (1 CYCLE OF COMBINATION THERAPY WITH ARA-C AND GEMTUZUMAB OZOGAMICIN)
     Route: 065
  15. CYTARABINE [Concomitant]
     Active Substance: CYTARABINE
     Dosage: UNK, (CYTO-REDUCTIVE THERAPY WITH CYTARABINE)
     Route: 065
  16. GEMTUZUMAB OZOGAMICIN [Concomitant]
     Active Substance: GEMTUZUMAB OZOGAMICIN
     Indication: Acute myeloid leukaemia
     Dosage: UNK, (1 CYCLE OF COMBINATION THERAPY WITH ARA-C AND GEMTUZUMAB OZOGAMICIN)
     Route: 065
  17. IDARUBICIN [Concomitant]
     Active Substance: IDARUBICIN
     Indication: Acute myeloid leukaemia
     Dosage: UNK
     Route: 065
  18. BUSULFAN [Concomitant]
     Active Substance: BUSULFAN
     Indication: Product used for unknown indication
     Dosage: UNK, (CONDITIONING REGIMEN)
     Route: 065

REACTIONS (3)
  - Drug ineffective [Fatal]
  - Graft versus host disease in skin [Recovered/Resolved]
  - Off label use [Unknown]
